FAERS Safety Report 7331032-1 (Version None)
Quarter: 2011Q1

REPORT INFORMATION
  Report Type: 
  Country: None (occurrence: None)
  Receive Date: 20110228
  Receipt Date: 20110228
  Transmission Date: 20110831
  Serious: No
  Sender: FDA-Public Use
  Company Number: None

PATIENT
  Age: 78 Year
  Sex: Female
  Weight: 58.9676 kg

DRUGS (1)
  1. PFIZER LIPITOR [Suspect]
     Indication: BLOOD CHOLESTEROL
     Dosage: 1 A DAY

REACTIONS (1)
  - LIVER INJURY [None]
